FAERS Safety Report 25450149 (Version 1)
Quarter: 2025Q2

REPORT INFORMATION
  Report Type: Other
  Country: GB (occurrence: GB)
  Receive Date: 20250618
  Receipt Date: 20250618
  Transmission Date: 20250716
  Serious: Yes (Other)
  Sender: GLENMARK
  Company Number: GB-MHRA-TPP35693107C8710113YC1749142158075

PATIENT
  Age: 77 Year
  Sex: Female
  Weight: 57 kg

DRUGS (28)
  1. DAPAGLIFLOZIN [Suspect]
     Active Substance: DAPAGLIFLOZIN
     Indication: Ill-defined disorder
     Dosage: 10 MILLIGRAM, OD, (TAKE ONE DAILY TO IMPROVE HEART AND KIDNEY FUNC...)
     Route: 065
     Dates: start: 20250304, end: 20250311
  2. DOXYCYCLINE [Concomitant]
     Active Substance: DOXYCYCLINE
     Indication: Ill-defined disorder
     Dosage: 2 DOSAGE FORM, QD (TAKE TWO CAPSULES NOW ON DAY 1 THEN TAKE ONE CAPSULE ONCE DAILY FOR 4 DAYS TO TRE
     Route: 065
     Dates: start: 20250407, end: 20250412
  3. PREDNISOLONE [Concomitant]
     Active Substance: PREDNISOLONE
     Indication: Ill-defined disorder
     Dosage: 6 DOSAGE FORM, QD (SIX TABLETS IN THE MORNING EVERY DAY FOR ONE WEEK)
     Route: 065
     Dates: start: 20250409, end: 20250416
  4. FUROSEMIDE [Concomitant]
     Active Substance: FUROSEMIDE
     Indication: Ill-defined disorder
     Route: 065
     Dates: start: 20250327, end: 20250423
  5. DIAZEPAM [Concomitant]
     Active Substance: DIAZEPAM
     Indication: Ill-defined disorder
     Route: 065
     Dates: start: 20250327, end: 20250403
  6. MORPHINE SULFATE [Concomitant]
     Active Substance: MORPHINE SULFATE
     Indication: Pain
     Route: 065
     Dates: start: 20250604
  7. HYDROXOCOBALAMIN [Concomitant]
     Active Substance: HYDROXOCOBALAMIN
     Indication: Ill-defined disorder
     Route: 030
     Dates: start: 20250411
  8. APIXABAN [Concomitant]
     Active Substance: APIXABAN
     Indication: Ill-defined disorder
     Dosage: UNK UNK, BID, TAKE ONE TWICE DAILY (TO REDUCE THE RISK OF BLO...
     Route: 065
     Dates: start: 20250425, end: 20250523
  9. NITROGLYCERIN [Concomitant]
     Active Substance: NITROGLYCERIN
     Indication: Ill-defined disorder
     Route: 065
     Dates: start: 20230606
  10. ACETAMINOPHEN [Concomitant]
     Active Substance: ACETAMINOPHEN
     Indication: Pain
     Dosage: UNK, QID, ONE OR TWO TABLETS UPTO FOUR TIMES DAILY FOR PAIN
     Route: 065
     Dates: start: 20240228
  11. Peptac d [Concomitant]
     Indication: Ill-defined disorder
     Route: 065
     Dates: start: 20240321
  12. ASPIRIN [Concomitant]
     Active Substance: ASPIRIN
     Indication: Ill-defined disorder
     Dosage: 1 DOSAGE FORM, QD (ONE TABLET DISSOLVED IN WATER AND TAKEN ONCE DA...)
     Route: 065
     Dates: start: 20240403, end: 20250603
  13. CITALOPRAM [Concomitant]
     Active Substance: CITALOPRAM
     Indication: Anxiety
     Route: 065
     Dates: start: 20240403
  14. CITALOPRAM [Concomitant]
     Active Substance: CITALOPRAM
     Indication: Depression
  15. SENNA [Concomitant]
     Active Substance: SENNOSIDES
     Indication: Ill-defined disorder
     Dosage: 2 DOSAGE FORM, OD, ~2 TABLETS AT NIGHT
     Route: 065
     Dates: start: 20240403
  16. ATORVASTATIN [Concomitant]
     Active Substance: ATORVASTATIN
     Indication: Blood cholesterol increased
     Dosage: UNK UNK, OD, ONE TO BE TAKEN DAILY TO LOWER CHOLESTEROL
     Route: 065
     Dates: start: 20240424
  17. SPIRIVA [Concomitant]
     Active Substance: TIOTROPIUM BROMIDE MONOHYDRATE
     Indication: Ill-defined disorder
     Dosage: UNK, OD, TAKE TWO PUFFS ONCE DAILY (REPLACE INHALER DEVI...
     Route: 065
     Dates: start: 20240702
  18. LANSOPRAZOLE [Concomitant]
     Active Substance: LANSOPRAZOLE
     Indication: Prophylaxis
     Route: 065
     Dates: start: 20241025
  19. POLYETHYLENE GLYCOL 3350\POTASSIUM CHLORIDE\SODIUM BICARBONATE\SODIUM [Concomitant]
     Active Substance: POLYETHYLENE GLYCOL 3350\POTASSIUM CHLORIDE\SODIUM BICARBONATE\SODIUM CHLORIDE
     Indication: Constipation prophylaxis
     Dosage: UNK UNK, OD, ONE SACHET DAILY TO PREVENT CONSTIPATION WHE RE...
     Route: 065
     Dates: start: 20241104
  20. MONTELUKAST [Concomitant]
     Active Substance: MONTELUKAST
     Indication: Asthma prophylaxis
     Dosage: 1 DOSAGE FORM, QD (ONE TABLET AT NIGHT TO PREVENT ASTHMA)
     Route: 065
     Dates: start: 20241120
  21. NEBIVOLOL [Concomitant]
     Active Substance: NEBIVOLOL
     Indication: Ill-defined disorder
     Route: 065
     Dates: start: 20250109
  22. ALENDRONIC ACID [Concomitant]
     Active Substance: ALENDRONIC ACID
     Indication: Ill-defined disorder
     Route: 065
     Dates: start: 20250124
  23. VENTOLIN [Concomitant]
     Active Substance: ALBUTEROL SULFATE
     Indication: Ill-defined disorder
     Dates: start: 20250211
  24. BUDESONIDE\FORMOTEROL [Concomitant]
     Active Substance: BUDESONIDE\FORMOTEROL
     Indication: Ill-defined disorder
     Dosage: UNK, BID, MAINTENANCE: INHALE TWO DOSES TWICE DAILY. RELI...
     Dates: start: 20250228
  25. EMPAGLIFLOZIN [Concomitant]
     Active Substance: EMPAGLIFLOZIN
     Indication: Ill-defined disorder
     Route: 065
     Dates: start: 20250319
  26. RIVAROXABAN [Concomitant]
     Active Substance: RIVAROXABAN
     Indication: Ill-defined disorder
     Dosage: 1 DOSAGE FORM, OD, ONE TABLET ONCE DAILY (WITH LARGEST MEAL OF THE...
     Route: 065
     Dates: start: 20250327, end: 20250425
  27. CLOPIDOGREL [Concomitant]
     Active Substance: CLOPIDOGREL BISULFATE
     Indication: Ill-defined disorder
     Dosage: 1 DOSAGE FORM, OD, ONE TABLET ONCE DAILY, TO REDUCE RISK OF HEART ...
     Route: 065
     Dates: start: 20250528
  28. EDOXABAN [Concomitant]
     Active Substance: EDOXABAN
     Indication: Ill-defined disorder
     Dosage: UNK, OD, ONE DAILY AT THE SAME TIME EACH DAY - TO REDUCE...
     Route: 065
     Dates: start: 20250528

REACTIONS (5)
  - Chest discomfort [Recovered/Resolved]
  - Swollen tongue [Recovered/Resolved]
  - Mouth swelling [Recovered/Resolved]
  - Dyspnoea [Recovered/Resolved]
  - Dry mouth [Recovered/Resolved]

NARRATIVE: CASE EVENT DATE: 20250311
